FAERS Safety Report 23853052 (Version 1)
Quarter: 2024Q2

REPORT INFORMATION
  Report Type: Spontaneous
  Country: IT (occurrence: IT)
  Receive Date: 20240514
  Receipt Date: 20240514
  Transmission Date: 20240716
  Serious: Yes (Other)
  Sender: FDA-Public Use
  Company Number: IT-ELI_LILLY_AND_COMPANY-IT202403011687

PATIENT
  Age: 73 Year
  Sex: Male

DRUGS (2)
  1. PEMETREXED [Suspect]
     Active Substance: PEMETREXED
     Indication: Pleural mesothelioma malignant
     Dosage: UNK, CYCLICAL (20ML/25MG/ML)
     Route: 042
     Dates: start: 202311, end: 202402
  2. CARBOPLATIN [Concomitant]
     Active Substance: CARBOPLATIN
     Indication: Pleural mesothelioma malignant
     Dosage: UNK, CYCLICAL
     Route: 065
     Dates: start: 202311, end: 202402

REACTIONS (1)
  - Malignant neoplasm progression [Unknown]
